FAERS Safety Report 20719058 (Version 1)
Quarter: 2022Q2

REPORT INFORMATION
  Report Type: Spontaneous
  Country: FR (occurrence: FR)
  Receive Date: 20220418
  Receipt Date: 20220418
  Transmission Date: 20220721
  Serious: Yes (Other)
  Sender: FDA-Public Use
  Company Number: FR-ALKEM LABORATORIES LIMITED-FR-ALKEM-2022-01395

PATIENT

DRUGS (1)
  1. AZATHIOPRINE [Suspect]
     Active Substance: AZATHIOPRINE
     Indication: Product used for unknown indication
     Dosage: 2.0 MG PER KILOGRAM OF BODY WEIGHT PER DAY
     Route: 048

REACTIONS (7)
  - Thrombocytopenia [Unknown]
  - Rash [Unknown]
  - Lymphopenia [Unknown]
  - Infection [Unknown]
  - Respiratory disorder [Unknown]
  - Fracture [Unknown]
  - Mental disorder [Unknown]
